FAERS Safety Report 8123273-0 (Version None)
Quarter: 2012Q1

REPORT INFORMATION
  Report Type: 
  Country: None (occurrence: None)
  Receive Date: 20120208
  Receipt Date: 20120202
  Transmission Date: 20120608
  Serious: Yes (Hospitalization, Other)
  Sender: FDA-Public Use
  Company Number: US-PFIZER INC-2011316934

PATIENT
  Sex: Female
  Weight: 95.238 kg

DRUGS (3)
  1. METFORMIN [Concomitant]
     Indication: DIABETES MELLITUS
     Dosage: 1000 MG, 2X/DAY
  2. GLIMEPIRIDE [Concomitant]
     Indication: DIABETES MELLITUS
     Dosage: 4 MG, DAILY
  3. LIPITOR [Suspect]
     Indication: BLOOD CHOLESTEROL INCREASED
     Dosage: 80 MG, 1X/DAY, AT NIGHT

REACTIONS (5)
  - MYOCARDIAL INFARCTION [None]
  - UPPER LIMB FRACTURE [None]
  - FALL [None]
  - ACCIDENT [None]
  - CARDIOVASCULAR DISORDER [None]
